FAERS Safety Report 9968017 (Version 1)
Quarter: 2014Q1

REPORT INFORMATION
  Report Type: Report from Study
  Country: US (occurrence: US)
  Receive Date: 20140306
  Receipt Date: 20140306
  Transmission Date: 20141002
  Serious: No
  Sender: FDA-Public Use
  Company Number: US-ABBVIE-13P-163-1142063-00

PATIENT
  Sex: Female

DRUGS (12)
  1. HUMIRA [Suspect]
     Indication: PSORIASIS
     Dates: start: 20130530
  2. OMEPRAZOLE [Concomitant]
     Indication: GASTROOESOPHAGEAL REFLUX DISEASE
  3. METFORMIN [Concomitant]
     Indication: DIABETES MELLITUS
  4. ALLOPURINOL [Concomitant]
     Indication: GOUT
     Dosage: OD
  5. BENAZEPRIL [Concomitant]
     Indication: BLOOD PRESSURE
  6. HYDROCHLOROTHIAZIDE [Concomitant]
     Indication: BLOOD PRESSURE
  7. ASA [Concomitant]
     Indication: ANTICOAGULANT THERAPY
  8. COLCRYS [Concomitant]
     Indication: GOUT
  9. ZOLPIDEM [Concomitant]
     Indication: INSOMNIA
     Dosage: AT BEDTIME
  10. ATENOLOL [Concomitant]
     Indication: BLOOD PRESSURE
     Dosage: 25 MG QG
  11. LOVASTATIN [Concomitant]
     Indication: BLOOD TRIGLYCERIDES
  12. PSORIASIS TOPICALS [Concomitant]
     Indication: PSORIASIS

REACTIONS (1)
  - Weight increased [Not Recovered/Not Resolved]
